FAERS Safety Report 5823283-X (Version None)
Quarter: 2008Q3

REPORT INFORMATION
  Report Type: 
  Country: None (occurrence: None)
  Receive Date: 20080725
  Receipt Date: 20080714
  Transmission Date: 20090109
  Serious: Yes (Hospitalization)
  Sender: FDA-Public Use
  Company Number: US-JNJFOC-20080703371

PATIENT
  Sex: Female
  Weight: 31.9 kg

DRUGS (6)
  1. REMICADE [Suspect]
     Route: 042
  2. REMICADE [Suspect]
     Indication: COLITIS ULCERATIVE
     Route: 042
  3. PREDNISONE [Concomitant]
  4. 5-ASA [Concomitant]
     Route: 048
  5. VANCOMYCIN HCL [Concomitant]
  6. PREVACID [Concomitant]

REACTIONS (1)
  - COLITIS ULCERATIVE [None]
